FAERS Safety Report 10086380 (Version 1)
Quarter: 2014Q2

REPORT INFORMATION
  Report Type: Spontaneous
  Country: US (occurrence: None)
  Receive Date: 20140417
  Receipt Date: 20140417
  Transmission Date: 20141212
  Serious: Yes (Disabling)
  Sender: FDA-Public Use
  Company Number: None

PATIENT
  Age: 49 Year
  Sex: Female
  Weight: 63.5 kg

DRUGS (2)
  1. LEVOFLOXACIN [Suspect]
     Indication: URINARY TRACT INFECTION
     Dosage: 750MG/14 TABLETS ?ONCE DAILY?TAKEN BY MOUTH
     Route: 048
     Dates: start: 20140409, end: 20140413
  2. LEVOFLOXACIN [Suspect]
     Indication: KIDNEY INFECTION
     Dosage: 750MG/14 TABLETS ?ONCE DAILY?TAKEN BY MOUTH
     Route: 048
     Dates: start: 20140409, end: 20140413

REACTIONS (5)
  - Tendon disorder [None]
  - Erythema [None]
  - Swelling [None]
  - Muscular weakness [None]
  - Abasia [None]
